FAERS Safety Report 7289005-3 (Version None)
Quarter: 2011Q1

REPORT INFORMATION
  Report Type: 
  Country: None (occurrence: None)
  Receive Date: 20110211
  Receipt Date: 20110208
  Transmission Date: 20110831
  Serious: Yes (Life-Threatening, Hospitalization)
  Sender: FDA-Public Use
  Company Number: PHHY2010DK80994

PATIENT
  Sex: Female

DRUGS (9)
  1. CIPROFLOXACIN [Suspect]
     Indication: NAUSEA
     Dosage: UNK
     Route: 048
     Dates: start: 20101006, end: 20101006
  2. IMODIUM [Suspect]
     Indication: DIARRHOEA
     Dosage: 2 MILLIGRAM(S)
     Route: 048
     Dates: start: 20101006, end: 20101006
  3. IMODIUM [Suspect]
  4. CIPROFLOXACIN ^ARROW^ [Suspect]
     Indication: DIARRHOEA
     Dosage: DOSAGE FORM: FILM COATED TABLET
     Route: 048
     Dates: start: 20101006, end: 20101006
  5. PRIMPERAN TAB [Suspect]
     Dosage: DOSAGE FORM: TABLETS
     Route: 048
     Dates: start: 20101006, end: 20101006
  6. PRIMPERAN TAB [Suspect]
     Indication: NAUSEA
     Dosage: UNK,UNK
     Route: 048
     Dates: start: 20101006, end: 20101006
  7. TEGRETOL [Suspect]
     Dosage: DOSAGE FORM: TABLET, SINCE 15 YEARS.
     Route: 048
     Dates: start: 19950101, end: 20101009
  8. LOPERAMIDE [Suspect]
  9. TEGRETOL [Suspect]
     Indication: EPILEPSY
     Dosage: UNK
     Route: 048
     Dates: start: 19950101, end: 20101009

REACTIONS (2)
  - TOXIC EPIDERMAL NECROLYSIS [None]
  - TRANSIENT ISCHAEMIC ATTACK [None]
